FAERS Safety Report 9542954 (Version 2)
Quarter: 2013Q3

REPORT INFORMATION
  Report Type: Spontaneous
  Country: FR (occurrence: FR)
  Receive Date: 20130923
  Receipt Date: 20130923
  Transmission Date: 20140515
  Serious: Yes (Hospitalization, Disabling)
  Sender: FDA-Public Use
  Company Number: FR-009507513-97036185

PATIENT
  Sex: Female
  Weight: 56 kg

DRUGS (2)
  1. NOROXINE [Suspect]
     Indication: ESCHERICHIA URINARY TRACT INFECTION
     Dosage: 400 MG, BID
     Route: 048
     Dates: start: 19961101, end: 19961106
  2. ETHINYL ESTRADIOL (+) LEVONORGESTREL [Concomitant]

REACTIONS (8)
  - Phlebitis [Recovered/Resolved]
  - Tendonitis [Not Recovered/Not Resolved]
  - Tendon rupture [Recovered/Resolved]
  - Tendon rupture [Unknown]
  - Tendonitis [Not Recovered/Not Resolved]
  - Chondropathy [Unknown]
  - Photosensitivity reaction [Recovered/Resolved]
  - Liver disorder [Unknown]
